FAERS Safety Report 18755097 (Version 1)
Quarter: 2021Q1

REPORT INFORMATION
  Report Type: Spontaneous
  Country: US (occurrence: US)
  Receive Date: 20210115
  Receipt Date: 20210115
  Transmission Date: 20210419
  Serious: Yes (Hospitalization)
  Sender: FDA-Public Use
  Company Number: None

PATIENT
  Age: 70 Year
  Sex: Male
  Weight: 58.8 kg

DRUGS (1)
  1. CISPLATIN (119875) [Suspect]
     Active Substance: CISPLATIN
     Dates: end: 20201123

REACTIONS (7)
  - Cellulitis orbital [None]
  - Superinfection [None]
  - Periorbital cellulitis [None]
  - Ophthalmoplegia [None]
  - Keratinising squamous cell carcinoma of nasopharynx [None]
  - Pancytopenia [None]
  - Staphylococcus test positive [None]

NARRATIVE: CASE EVENT DATE: 20201203
